FAERS Safety Report 4941027-0 (Version None)
Quarter: 2006Q1

REPORT INFORMATION
  Report Type: 
  Country: None (occurrence: None)
  Receive Date: 20060313
  Receipt Date: 20060308
  Transmission Date: 20060701
  Serious: Yes (Congenital Anomaly)
  Sender: FDA-Public Use
  Company Number: US-AVENTIS-200612205US

PATIENT

DRUGS (2)
  1. LEFLUNOMIDE [Suspect]
     Dosage: DOSE: UNKNOWN
  2. INFLIXIMAB [Suspect]
     Dosage: DOSE: UNKNOWN

REACTIONS (3)
  - CONGENITAL ANOMALY [None]
  - DRUG EXPOSURE DURING PREGNANCY [None]
  - INTESTINAL MALROTATION [None]
